FAERS Safety Report 25141254 (Version 1)
Quarter: 2025Q1

REPORT INFORMATION
  Report Type: Spontaneous
  Country: CN (occurrence: CN)
  Receive Date: 20250331
  Receipt Date: 20250331
  Transmission Date: 20250408
  Serious: Yes (Other)
  Sender: BRACCO
  Company Number: CN-BRACCO-2025CN01846

PATIENT
  Age: 59 Year
  Sex: Female

DRUGS (3)
  1. SULPHUR HEXAFLUORIDE [Suspect]
     Active Substance: SULFUR HEXAFLUORIDE
     Indication: Ultrasound scan
     Route: 040
     Dates: start: 20250310, end: 20250310
  2. SULPHUR HEXAFLUORIDE [Suspect]
     Active Substance: SULFUR HEXAFLUORIDE
     Indication: Ultrasound scan
     Route: 040
     Dates: start: 20250310, end: 20250310
  3. SULPHUR HEXAFLUORIDE [Suspect]
     Active Substance: SULFUR HEXAFLUORIDE
     Indication: Ultrasound scan
     Route: 040
     Dates: start: 20250310, end: 20250310

REACTIONS (2)
  - Off label use [Recovering/Resolving]
  - Anaphylactoid reaction [Recovering/Resolving]

NARRATIVE: CASE EVENT DATE: 20250310
